FAERS Safety Report 17175583 (Version 1)
Quarter: 2019Q4

REPORT INFORMATION
  Report Type: Spontaneous
  Country: DK (occurrence: DK)
  Receive Date: 20191219
  Receipt Date: 20191219
  Transmission Date: 20200122
  Serious: Yes (Hospitalization)
  Sender: FDA-Public Use
  Company Number: NVSC2018DK000539

PATIENT
  Age: 75 Year
  Sex: Male

DRUGS (17)
  1. BICALUTAMIDE TEVA [Interacting]
     Active Substance: BICALUTAMIDE
     Indication: PROSTATE CANCER
     Dosage: 75 MG, QD
     Route: 048
     Dates: start: 201712
  2. MAREVAN [Concomitant]
     Active Substance: WARFARIN SODIUM
     Indication: THROMBOSIS PROPHYLAXIS
     Dosage: UNK
     Route: 048
     Dates: start: 20160907
  3. ARANESP [Concomitant]
     Active Substance: DARBEPOETIN ALFA
     Indication: ANAEMIA
     Dosage: 20 UG, QW
     Route: 065
     Dates: start: 20160914
  4. IRON [Concomitant]
     Active Substance: IRON
     Indication: IRON DEFICIENCY
     Dosage: 200 MG, QD
     Route: 048
     Dates: start: 20131206
  5. PAMOL [Concomitant]
     Active Substance: ACETAMINOPHEN
     Indication: PAIN
     Dosage: 1000 MG (2 TABLETTER VED BEHOV. MAX. 8 TABLETTER PER DAG)
     Route: 048
  6. ZYCLARA [Concomitant]
     Active Substance: IMIQUIMOD
     Indication: ACTINIC KERATOSIS
     Dosage: 1 DF, QD (DAGLIGT I 14 DAGE, HEREFTER 14 DAGES PAUSE OG GENTAG)
     Route: 003
     Dates: start: 20161118
  7. KALEORID [Concomitant]
     Active Substance: POTASSIUM CHLORIDE
     Indication: MINERAL SUPPLEMENTATION
     Dosage: 1500 MG, QD (DER ER IKKE FUNDET DATA FOR ORDINATION FOR 16 FEB 2018)
     Route: 048
  8. EZETROL [Concomitant]
     Active Substance: EZETIMIBE
     Indication: HYPERCHOLESTEROLAEMIA
     Dosage: 10 MG, QD
     Route: 048
     Dates: start: 20150922
  9. FURIX [Concomitant]
     Indication: DIURETIC THERAPY
     Dosage: 20 MG (0.5 TABLETTER VED BEHOV)
     Route: 048
     Dates: start: 20160713
  10. UNIKALK BASIC [Concomitant]
     Indication: MINERAL SUPPLEMENTATION
     Dosage: 800 MG, QD
     Route: 048
     Dates: start: 20180124
  11. VITAMIN D [Concomitant]
     Active Substance: VITAMIN D NOS
     Indication: VITAMIN D DEFICIENCY
     Dosage: 2800 IU, QD
     Route: 048
     Dates: start: 20151127
  12. MIMPARA [Concomitant]
     Active Substance: CINACALCET HYDROCHLORIDE
     Indication: PARATHYROID DISORDER
     Dosage: 30 MG, BID
     Route: 048
     Dates: start: 20160907
  13. IMOCLONE [Concomitant]
     Active Substance: ZOPICLONE
     Indication: INSOMNIA
     Dosage: 7.5 MG (1 TABLET TIL NAT VED BEHOV. MAX. 1 TABLET PER DAG)
     Route: 048
     Dates: start: 20160909
  14. KNIN [Concomitant]
     Indication: MUSCLE SPASMS
     Dosage: 100 MG, QD
     Route: 048
     Dates: start: 20160329
  15. MYFENAX [Concomitant]
     Active Substance: MYCOPHENOLATE MOFETIL
     Indication: IMMUNOSUPPRESSION
     Dosage: 500 MG, QD
     Route: 048
     Dates: start: 20161103
  16. LAXOBERAL [Concomitant]
     Active Substance: SODIUM PICOSULFATE
     Indication: CONSTIPATION
     Dosage: 15 DF, QD
     Route: 048
     Dates: start: 2016
  17. ADPORT [Suspect]
     Active Substance: TACROLIMUS
     Indication: KIDNEY TRANSPLANT REJECTION
     Dosage: 4 MG, QD (FOR AT UNDG AFSTODNING)
     Route: 048
     Dates: start: 201608

REACTIONS (5)
  - Drug interaction [Not Recovered/Not Resolved]
  - Toxicity to various agents [Unknown]
  - Drug level increased [Not Recovered/Not Resolved]
  - Renal impairment [Unknown]
  - Blood creatinine increased [Unknown]

NARRATIVE: CASE EVENT DATE: 201712
